FAERS Safety Report 6309029-X (Version None)
Quarter: 2009Q3

REPORT INFORMATION
  Report Type: 
  Country: None (occurrence: None)
  Receive Date: 20090814
  Receipt Date: 20090806
  Transmission Date: 20100115
  Serious: Yes (Hospitalization, Other)
  Sender: FDA-Public Use
  Company Number: US-BIOGENIDEC-2009BI007590

PATIENT
  Age: 58 Year
  Sex: Female
  Weight: 64 kg

DRUGS (2)
  1. TYSABRI [Suspect]
     Indication: MULTIPLE SCLEROSIS
     Route: 042
     Dates: start: 20081201, end: 20081201
  2. TYSABRI [Suspect]
     Route: 042
     Dates: start: 20090301

REACTIONS (4)
  - INFUSION RELATED REACTION [None]
  - MEMORY IMPAIRMENT [None]
  - MULTIPLE SCLEROSIS RELAPSE [None]
  - PYREXIA [None]
